FAERS Safety Report 14444432 (Version 1)
Quarter: 2018Q1

REPORT INFORMATION
  Report Type: Other
  Country: FR (occurrence: FR)
  Receive Date: 20180125
  Receipt Date: 20180125
  Transmission Date: 20180509
  Serious: Yes (Other)
  Sender: FDA-Public Use
  Company Number: FR-MACLEODS PHARMACEUTICALS US LTD-MAC2018008773

PATIENT

DRUGS (1)
  1. VALSARTAN. [Suspect]
     Active Substance: VALSARTAN
     Indication: HYPERTENSION
     Dosage: 1 DF, QD
     Route: 048
     Dates: start: 201712, end: 20180102

REACTIONS (3)
  - Product substitution issue [Not Recovered/Not Resolved]
  - Headache [Not Recovered/Not Resolved]
  - Product measured potency issue [Not Recovered/Not Resolved]

NARRATIVE: CASE EVENT DATE: 201712
